FAERS Safety Report 14185184 (Version 3)
Quarter: 2018Q1

REPORT INFORMATION
  Report Type: Report from Study
  Country: DE (occurrence: DE)
  Receive Date: 20171113
  Receipt Date: 20180104
  Transmission Date: 20180508
  Serious: Yes (Death, Hospitalization)
  Sender: FDA-Public Use
  Company Number: DE-AMGEN-DEUNI2017170424

PATIENT
  Age: 56 Year
  Sex: Female

DRUGS (3)
  1. ETANERCEPT [Suspect]
     Active Substance: ETANERCEPT
     Indication: RHEUMATOID ARTHRITIS
     Dosage: 50 MG, WEEKLY EVERY7 DAYS
     Route: 065
     Dates: end: 201606
  2. CELECOXIB. [Concomitant]
     Active Substance: CELECOXIB
     Dosage: UNK
  3. PREDNISOLON [Concomitant]
     Active Substance: PREDNISOLONE
     Dosage: UNK

REACTIONS (4)
  - Neoplasm progression [Fatal]
  - Ovarian cancer metastatic [Fatal]
  - Metastases to peritoneum [Fatal]
  - Ileus [Fatal]

NARRATIVE: CASE EVENT DATE: 201604
